FAERS Safety Report 5930423-0 (Version None)
Quarter: 2008Q4

REPORT INFORMATION
  Report Type: 
  Country: None (occurrence: None)
  Receive Date: 20081021
  Receipt Date: 20081007
  Transmission Date: 20090506
  Serious: Yes (Death, Hospitalization)
  Sender: FDA-Public Use
  Company Number: 2008BI026708

PATIENT
  Sex: Female

DRUGS (16)
  1. TYSABRI [Suspect]
     Indication: MULTIPLE SCLEROSIS
     Dosage: 300 MG; QM; IV
     Route: 042
     Dates: start: 20050223, end: 20080221
  2. TYSABRI [Suspect]
     Indication: MULTIPLE SCLEROSIS
     Dosage: 300 MG; QM; IV
     Route: 042
     Dates: start: 20061109, end: 20080401
  3. ENDOCET [Concomitant]
  4. AMBIEN [Concomitant]
  5. VALIUM [Concomitant]
  6. LASIX [Concomitant]
  7. POTASSIUM CHLORIDE [Concomitant]
  8. SOMA [Concomitant]
  9. BACLOFEN [Concomitant]
  10. ZYPREXA [Concomitant]
  11. DOXEPIN HCL [Concomitant]
  12. CRESTOR [Concomitant]
  13. TOPAMAX [Concomitant]
  14. PREDNISONE [Concomitant]
  15. PROZAC [Concomitant]
  16. ELAVIL [Concomitant]

REACTIONS (10)
  - ABDOMINAL PAIN [None]
  - FALL [None]
  - HAEMATEMESIS [None]
  - HYPOPHAGIA [None]
  - MULTIPLE DRUG OVERDOSE INTENTIONAL [None]
  - NAUSEA [None]
  - PNEUMONIA VIRAL [None]
  - RHABDOMYOLYSIS [None]
  - STRESS [None]
  - VOMITING [None]
